FAERS Safety Report 4418053-3 (Version None)
Quarter: 2004Q3

REPORT INFORMATION
  Report Type: 
  Country: None (occurrence: None)
  Receive Date: 20040803
  Receipt Date: 20040719
  Transmission Date: 20050211
  Serious: Yes (Other)
  Sender: FDA-Public Use
  Company Number: 2004-00233

PATIENT
  Age: 65 Year
  Sex: Female
  Weight: 83 kg

DRUGS (1)
  1. VELCADE [Suspect]
     Indication: MULTIPLE MYELOMA
     Dates: start: 20040510, end: 20040701

REACTIONS (1)
  - WHITE BLOOD CELL COUNT DECREASED [None]
